FAERS Safety Report 4365655-9 (Version None)
Quarter: 2004Q2

REPORT INFORMATION
  Report Type: 
  Country: None (occurrence: None)
  Receive Date: 20040525
  Receipt Date: 20040525
  Transmission Date: 20050107
  Serious: Yes (Other)
  Sender: FDA-Public Use
  Company Number: None

PATIENT
  Sex: Female

DRUGS (5)
  1. OXALIPLATIN [Suspect]
     Indication: CARCINOMA
     Dosage: 125 MG
  2. OXALIPLATIN [Suspect]
     Indication: CHEMOTHERAPY
     Dosage: 125 MG
  3. CALCIUM GLUCONATE [Concomitant]
  4. MAGNESIUM SULFATE [Concomitant]
  5. LEUCOVORIN CALCIUM [Concomitant]

REACTIONS (5)
  - DIZZINESS [None]
  - DYSPNOEA [None]
  - HYPOTENSION [None]
  - RASH [None]
  - WHEEZING [None]
